FAERS Safety Report 17735404 (Version 5)
Quarter: 2020Q2

REPORT INFORMATION
  Report Type: Report from Study
  Country: IN (occurrence: IN)
  Receive Date: 20200501
  Receipt Date: 20200602
  Transmission Date: 20200714
  Serious: Yes (Other)
  Sender: FDA-Public Use
  Company Number: NVSC2020IN090264

PATIENT
  Age: 52 Year
  Sex: Male
  Weight: 89 kg

DRUGS (1)
  1. GALVUS MET [Suspect]
     Active Substance: METFORMIN HYDROCHLORIDE\VILDAGLIPTIN
     Indication: DIABETES MELLITUS
     Dosage: 1 DF, BID (METFORMIN 50 MG,VILDAGLIPTIN 500 MG)
     Route: 048
     Dates: start: 202001

REACTIONS (9)
  - Blood pressure increased [Unknown]
  - Hepatic steatosis [Recovered/Resolved with Sequelae]
  - Spinal disorder [Unknown]
  - Hepatic fibrosis [Recovered/Resolved with Sequelae]
  - Blood glucose increased [Unknown]
  - Hyperglycaemia [Unknown]
  - Dysstasia [Unknown]
  - Overweight [Unknown]
  - Glycosylated haemoglobin increased [Unknown]

NARRATIVE: CASE EVENT DATE: 20200328
